FAERS Safety Report 12579544 (Version 3)
Quarter: 2016Q3

REPORT INFORMATION
  Report Type: Report from Study
  Country: TW (occurrence: TW)
  Receive Date: 20160721
  Receipt Date: 20160811
  Transmission Date: 20161109
  Serious: Yes (Hospitalization)
  Sender: FDA-Public Use
  Company Number: TW-JNJFOC-20160711474

PATIENT
  Age: 59 Year
  Sex: Male
  Weight: 70 kg

DRUGS (11)
  1. ACEMETACIN [Concomitant]
     Active Substance: ACEMETACIN
     Indication: PAIN MANAGEMENT
     Route: 048
     Dates: start: 20160531, end: 20160613
  2. STELARA [Suspect]
     Active Substance: USTEKINUMAB
     Indication: PSORIASIS
     Route: 058
     Dates: start: 20141128
  3. AMARYL M [Concomitant]
     Active Substance: GLIMEPIRIDE\METFORMIN
     Indication: DIABETES MELLITUS
     Dosage: FREQUENCY: IRREGULAR, 2 DOSES OF 0.5 MG GIVEN
     Route: 048
     Dates: start: 20160606
  4. CLOBETASOL PROPIONATE. [Concomitant]
     Active Substance: CLOBETASOL PROPIONATE
     Indication: PSORIASIS
     Dosage: 1 BOT
     Route: 061
     Dates: start: 20160531
  5. UREA. [Concomitant]
     Active Substance: UREA
     Indication: PSORIASIS
     Dosage: 1 TUBE
     Route: 061
     Dates: start: 20160531
  6. ASPIRIN. [Concomitant]
     Active Substance: ASPIRIN
     Indication: MYOCARDIAL INFARCTION
     Route: 048
     Dates: start: 20160427, end: 20160524
  7. CALCIPOTRIOL [Concomitant]
     Active Substance: CALCIPOTRIENE
     Indication: PSORIASIS
     Dosage: 1 TUBE
     Route: 061
     Dates: start: 20160531
  8. SITAGLIPTIN [Concomitant]
     Active Substance: SITAGLIPTIN
     Indication: DIABETES MELLITUS
     Route: 048
     Dates: start: 20160606
  9. DIAZEPAM. [Concomitant]
     Active Substance: DIAZEPAM
     Indication: ANXIETY
     Dosage: 0.5#
     Route: 048
     Dates: start: 20160427, end: 20160524
  10. SILYMARIN [Concomitant]
     Active Substance: MILK THISTLE
     Indication: LIVER DISORDER
     Route: 048
  11. PITAVASTATIN [Concomitant]
     Active Substance: PITAVASTATIN
     Indication: HYPERLIPIDAEMIA
     Dosage: 0.5#
     Route: 048
     Dates: start: 20160427, end: 20160524

REACTIONS (2)
  - Cerebral infarction [Recovered/Resolved]
  - Glycosylated haemoglobin increased [Unknown]

NARRATIVE: CASE EVENT DATE: 20160531
